FAERS Safety Report 15231125 (Version 4)
Quarter: 2018Q4

REPORT INFORMATION
  Report Type: Report from Study
  Country: CA (occurrence: CA)
  Receive Date: 20180802
  Receipt Date: 20181119
  Transmission Date: 20190204
  Serious: Yes (Other)
  Sender: FDA-Public Use
  Company Number: CA-ROCHE-2132482

PATIENT
  Age: 31 Year
  Sex: Female

DRUGS (3)
  1. OCREVUS [Suspect]
     Active Substance: OCRELIZUMAB
     Indication: RELAPSING-REMITTING MULTIPLE SCLEROSIS
     Dosage: 300 MG DAY 0, DAY 14 THEN 600 MG Q6M. ;ONGOING: YES
     Route: 042
     Dates: start: 20180525
  2. TYLENOL [Concomitant]
     Active Substance: ACETAMINOPHEN
  3. SOLU-MEDROL [Suspect]
     Active Substance: METHYLPREDNISOLONE SODIUM SUCCINATE
     Indication: PREMEDICATION
     Route: 065

REACTIONS (8)
  - Subcutaneous abscess [Recovering/Resolving]
  - Subcutaneous abscess [Not Recovered/Not Resolved]
  - Tendonitis [Recovering/Resolving]
  - Tooth abscess [Recovered/Resolved]
  - Periarthritis [Recovering/Resolving]
  - Vaginal infection [Recovering/Resolving]
  - Hyperglycaemia [Recovered/Resolved]
  - Mouth ulceration [Recovered/Resolved]

NARRATIVE: CASE EVENT DATE: 20180525
